FAERS Safety Report 7178774-9 (Version None)
Quarter: 2010Q4

REPORT INFORMATION
  Report Type: 
  Country: None (occurrence: None)
  Receive Date: 20101221
  Receipt Date: 20101213
  Transmission Date: 20110411
  Serious: No
  Sender: FDA-Public Use
  Company Number: US-ROXANE LABORATORIES, INC.-2010-RO-01524RO

PATIENT
  Sex: Female

DRUGS (6)
  1. ACARBOSE [Suspect]
     Indication: HYPOGLYCAEMIA
     Dosage: 75 MG
     Route: 048
     Dates: start: 20101106, end: 20101120
  2. LUNESTA [Concomitant]
     Dosage: 3 MG
  3. AMITRIPTYLINE [Concomitant]
     Dosage: 50 MG
  4. ULTRAM [Concomitant]
     Indication: BACK PAIN
  5. MOTRIN [Concomitant]
     Indication: BACK PAIN
  6. MAXALT [Concomitant]
     Indication: MIGRAINE

REACTIONS (3)
  - BLOOD GLUCOSE DECREASED [None]
  - VISION BLURRED [None]
  - VISUAL ACUITY REDUCED [None]
